FAERS Safety Report 4368313-X (Version None)
Quarter: 2004Q2

REPORT INFORMATION
  Report Type: 
  Country: None (occurrence: None)
  Receive Date: 20040527
  Receipt Date: 20040514
  Transmission Date: 20050107
  Serious: Yes (Hospitalization, Other)
  Sender: FDA-Public Use
  Company Number: HQWYE891614MAY04

PATIENT
  Age: 24 Month
  Sex: Male

DRUGS (4)
  1. CHILDREN'S ADVIL [Suspect]
     Indication: PYREXIA
     Route: 048
     Dates: start: 20040426, end: 20040430
  2. COQUELUSEDAL (CAMPHOR/EPHEDRINE/GELSEMIUM/GRINDELIA/NIAOULI OIL/PHENOB [Suspect]
     Indication: COUGH
     Route: 054
     Dates: start: 20040426, end: 20040430
  3. ACETAMINOPHEN [Suspect]
     Indication: VARICELLA
     Dates: start: 20040426
  4. TALC (TALC) [Concomitant]

REACTIONS (2)
  - CELLULITIS [None]
  - OEDEMA [None]
